FAERS Safety Report 4850733-8 (Version None)
Quarter: 2005Q4

REPORT INFORMATION
  Report Type: 
  Country: None (occurrence: None)
  Receive Date: 20051212
  Receipt Date: 20051130
  Transmission Date: 20060501
  Serious: Yes (Hospitalization)
  Sender: FDA-Public Use
  Company Number: US-BRISTOL-MYERS SQUIBB COMPANY-13200126

PATIENT
  Age: 56 Year
  Sex: Male
  Weight: 75 kg

DRUGS (13)
  1. CARBOPLATIN [Suspect]
     Indication: SQUAMOUS CELL CARCINOMA
     Route: 042
     Dates: start: 20010622, end: 20020416
  2. CISPLATIN [Suspect]
     Indication: SQUAMOUS CELL CARCINOMA
     Route: 042
     Dates: start: 20010622
  3. BLINDED: CETUXIMAB [Suspect]
     Indication: SQUAMOUS CELL CARCINOMA
     Route: 042
     Dates: start: 20010629, end: 20020409
  4. BLINDED: PLACEBO [Suspect]
     Indication: SQUAMOUS CELL CARCINOMA
  5. TYLENOL [Concomitant]
     Dates: start: 20021003, end: 20051004
  6. ATIVAN [Concomitant]
     Dates: start: 20020326
  7. ZOFRAN [Concomitant]
  8. DECADRON [Concomitant]
  9. BENADRYL [Concomitant]
  10. PROCRIT [Concomitant]
  11. REGLAN [Concomitant]
  12. SCOPOLAMINE [Concomitant]
  13. PRILOSEC [Concomitant]

REACTIONS (4)
  - HYPOTENSION [None]
  - ILEUS [None]
  - LEUKOPENIA [None]
  - SEPSIS [None]
